FAERS Safety Report 5493974-1 (Version None)
Quarter: 2007Q4

REPORT INFORMATION
  Report Type: 
  Country: None (occurrence: None)
  Receive Date: 20071023
  Receipt Date: 20071011
  Transmission Date: 20080405
  Serious: Yes (Other)
  Sender: FDA-Public Use
  Company Number: FI-PFIZER INC-2007013072

PATIENT
  Age: 29 Year
  Sex: Male

DRUGS (4)
  1. LYRICA [Suspect]
  2. ALL OTHER THERAPEUTIC PRODUCTS [Suspect]
  3. XANOR [Concomitant]
  4. SUBUTEX [Concomitant]

REACTIONS (5)
  - BALANCE DISORDER [None]
  - DRUG ABUSER [None]
  - FEELING DRUNK [None]
  - OVERDOSE [None]
  - PSYCHOTIC DISORDER [None]
